FAERS Safety Report 6454096-6 (Version None)
Quarter: 2009Q4

REPORT INFORMATION
  Report Type: 
  Country: None (occurrence: None)
  Receive Date: 20091117
  Receipt Date: 20091104
  Transmission Date: 20100525
  Serious: Yes (Congenital Anomaly)
  Sender: FDA-Public Use
  Company Number: 8039303

PATIENT
  Sex: Female

DRUGS (10)
  1. KEPPRA [Suspect]
     Indication: EPILEPSY
     Dosage: 500 MG /D, TRP
     Route: 064
  2. KEPPRA [Suspect]
     Indication: EPILEPSY
     Dosage: 1000 MG /D; TRP
     Route: 064
  3. KEPPRA [Suspect]
     Indication: EPILEPSY
     Dosage: 1500 MG /D; TRP
     Route: 064
  4. KEPPRA [Suspect]
     Indication: EPILEPSY
     Dosage: 2000 MG /D; TRP
     Route: 064
     Dates: start: 20070301, end: 20070321
  5. KEPPRA [Suspect]
     Indication: EPILEPSY
     Dosage: 2500 MG /D; TRP
     Route: 064
  6. KEPPRA [Suspect]
     Indication: EPILEPSY
     Dosage: 3000 MG /D; TRP
     Route: 064
  7. KEPPRA [Suspect]
     Indication: EPILEPSY
     Dosage: TRM
     Route: 063
  8. CITRACAL [Concomitant]
  9. DHA [Concomitant]
  10. TYLENOL (CAPLET) [Concomitant]

REACTIONS (4)
  - DRUG EXPOSURE VIA BREAST MILK [None]
  - ECTOPIC KIDNEY [None]
  - MATERNAL DRUGS AFFECTING FOETUS [None]
  - PREMATURE BABY [None]
